FAERS Safety Report 6445688-9 (Version None)
Quarter: 2009Q4

REPORT INFORMATION
  Report Type: 
  Country: None (occurrence: None)
  Receive Date: 20091118
  Receipt Date: 20091118
  Transmission Date: 20100525
  Serious: Yes (Life-Threatening, Other)
  Sender: FDA-Public Use
  Company Number: None

PATIENT
  Age: 61 Year
  Sex: Female
  Weight: 117.9352 kg

DRUGS (3)
  1. TOVIAZ [Suspect]
     Indication: URINARY INCONTINENCE
     Dosage: 1 CAPSULE 1 @ DAY PO
     Route: 048
     Dates: start: 20091111, end: 20091111
  2. FIBERCON [Suspect]
     Indication: CONSTIPATION
     Dosage: 1 TABLET 2@ DAY PO
     Route: 048
     Dates: start: 20091101, end: 20091108
  3. CITRACEL [Concomitant]

REACTIONS (11)
  - CHEST DISCOMFORT [None]
  - DIARRHOEA [None]
  - DRUG PRESCRIBING ERROR [None]
  - DYSPHAGIA [None]
  - DYSPNOEA [None]
  - GINGIVAL SWELLING [None]
  - HEADACHE [None]
  - HYPERSOMNIA [None]
  - OEDEMA MOUTH [None]
  - PRODUCT QUALITY ISSUE [None]
  - SWELLING FACE [None]
